FAERS Safety Report 7331620-2 (Version None)
Quarter: 2011Q1

REPORT INFORMATION
  Report Type: 
  Country: None (occurrence: None)
  Receive Date: 20110228
  Receipt Date: 20110228
  Transmission Date: 20110831
  Serious: No
  Sender: FDA-Public Use
  Company Number: None

PATIENT
  Sex: Female
  Weight: 100.3 kg

DRUGS (1)
  1. LUPRON DEPO 3.75MG ABBOTT [Suspect]
     Indication: ENDOMETRIOSIS
     Dosage: 3.75MG X1 IM
     Route: 030
     Dates: start: 20110131

REACTIONS (3)
  - DYSPNOEA [None]
  - OEDEMA PERIPHERAL [None]
  - ERYTHEMA [None]
